FAERS Safety Report 20699431 (Version 2)
Quarter: 2025Q2

REPORT INFORMATION
  Report Type: Spontaneous
  Country: US (occurrence: US)
  Receive Date: 20220412
  Receipt Date: 20250521
  Transmission Date: 20250717
  Serious: Yes (Other)
  Sender: ROCHE
  Company Number: US-ROCHE-3070987

PATIENT
  Sex: Male

DRUGS (1)
  1. OCREVUS [Suspect]
     Active Substance: OCRELIZUMAB
     Indication: Multiple sclerosis
     Dosage: STRENGTH- 300MG/10ML
     Route: 042
     Dates: start: 20200117

REACTIONS (1)
  - Multiple sclerosis relapse [Unknown]
